FAERS Safety Report 20466033 (Version 5)
Quarter: 2022Q3

REPORT INFORMATION
  Report Type: Report from Study
  Country: DE (occurrence: DE)
  Receive Date: 20220212
  Receipt Date: 20220828
  Transmission Date: 20221026
  Serious: Yes (Hospitalization, Other)
  Sender: FDA-Public Use
  Company Number: DE-JNJFOC-20220208708

PATIENT
  Sex: Female
  Weight: 122 kg

DRUGS (16)
  1. SELEXIPAG [Suspect]
     Active Substance: SELEXIPAG
     Indication: Pulmonary arterial hypertension
     Route: 048
     Dates: start: 20190619, end: 20190829
  2. SELEXIPAG [Suspect]
     Active Substance: SELEXIPAG
     Route: 048
     Dates: start: 20190830, end: 20190925
  3. SELEXIPAG [Suspect]
     Active Substance: SELEXIPAG
     Route: 048
     Dates: start: 20190926, end: 20191018
  4. SELEXIPAG [Suspect]
     Active Substance: SELEXIPAG
     Route: 048
     Dates: start: 20191019, end: 20191115
  5. SELEXIPAG [Suspect]
     Active Substance: SELEXIPAG
     Route: 048
     Dates: start: 20191116, end: 20200520
  6. SELEXIPAG [Suspect]
     Active Substance: SELEXIPAG
     Route: 048
     Dates: start: 20200521, end: 20211013
  7. MACITENTAN [Suspect]
     Active Substance: MACITENTAN
     Indication: Pulmonary arterial hypertension
     Route: 048
     Dates: start: 20180413
  8. SILDENAFIL [Concomitant]
     Active Substance: SILDENAFIL
     Indication: Pulmonary arterial hypertension
     Route: 048
     Dates: start: 20170705
  9. ALDACTONE [Concomitant]
     Active Substance: SPIRONOLACTONE
     Indication: Diuretic therapy
     Route: 048
     Dates: start: 20211013
  10. XIPAMIDE [Concomitant]
     Active Substance: XIPAMIDE
     Indication: Diuretic therapy
     Route: 048
     Dates: start: 20211013
  11. OXYGEN [Concomitant]
     Active Substance: OXYGEN
     Indication: Oxygen saturation decreased
     Route: 055
     Dates: start: 201710
  12. TORSEMIDE [Concomitant]
     Active Substance: TORSEMIDE
     Indication: Diuretic therapy
     Route: 048
     Dates: start: 201908
  13. TRAZODONE [Concomitant]
     Active Substance: TRAZODONE HYDROCHLORIDE
     Indication: Antidepressant therapy
     Route: 048
  14. METOPROLOL SUCCINATE [Concomitant]
     Active Substance: METOPROLOL SUCCINATE
     Indication: Hypertension
     Route: 048
  15. AMLODIPINE [Concomitant]
     Active Substance: AMLODIPINE BESYLATE
     Indication: Hypertension
     Route: 048
  16. LISINOPRIL [Concomitant]
     Active Substance: LISINOPRIL
     Indication: Hypertension
     Route: 048

REACTIONS (7)
  - Cardiac failure [Recovered/Resolved with Sequelae]
  - Atrial fibrillation [Recovered/Resolved]
  - Renal failure [Not Recovered/Not Resolved]
  - Oedema peripheral [Not Recovered/Not Resolved]
  - Blood uric acid increased [Not Recovered/Not Resolved]
  - Nasopharyngitis [Unknown]
  - Weight increased [Unknown]

NARRATIVE: CASE EVENT DATE: 20210222
